FAERS Safety Report 8595527-5 (Version None)
Quarter: 2012Q3

REPORT INFORMATION
  Report Type: 
  Country: None (occurrence: None)
  Receive Date: 20120815
  Receipt Date: 20120801
  Transmission Date: 20120928
  Serious: Yes (Other)
  Sender: FDA-Public Use
  Company Number: GB-MYLANLABS-2012S1012139

PATIENT
  Age: 16 Year
  Sex: Male
  Weight: 56.4 kg

DRUGS (8)
  1. ZYPREXA [Suspect]
     Dates: start: 20120523, end: 20120523
  2. ZUCLOPENTHIXOL [Concomitant]
     Indication: PSYCHOTIC DISORDER
     Route: 030
     Dates: start: 20120523, end: 20120523
  3. OLANZAPINE [Suspect]
  4. ZYPREXA [Suspect]
     Route: 048
     Dates: start: 20120523
  5. ZYPREXA [Suspect]
     Route: 030
     Dates: start: 20120522
  6. OLANZAPINE [Suspect]
  7. OLANZAPINE [Suspect]
     Indication: PSYCHOTIC DISORDER
     Dates: start: 20120524
  8. ZYPREXA [Suspect]
     Indication: PSYCHOTIC DISORDER
     Route: 030
     Dates: start: 20120521, end: 20120521

REACTIONS (5)
  - BLOOD THROMBIN INCREASED [None]
  - BLOOD CREATININE INCREASED [None]
  - PERICARDITIS [None]
  - PSYCHOTIC DISORDER [None]
  - MYOCARDITIS [None]
